FAERS Safety Report 7051383-8 (Version None)
Quarter: 2010Q4

REPORT INFORMATION
  Report Type: 
  Country: None (occurrence: None)
  Receive Date: 20101018
  Receipt Date: 20101018
  Transmission Date: 20110411
  Serious: Yes (Other)
  Sender: FDA-Public Use
  Company Number: None

PATIENT
  Sex: Female
  Weight: 65.9 kg

DRUGS (2)
  1. PAROXETINE HCL [Suspect]
     Indication: MIGRAINE
     Dosage: 40MG DAILY EVERY EVENING
  2. PAROXETINE HCL [Suspect]
     Indication: STRESS
     Dosage: 40MG DAILY EVERY EVENING

REACTIONS (5)
  - DRUG INEFFECTIVE [None]
  - EMOTIONAL DISTRESS [None]
  - NAUSEA [None]
  - VERTIGO [None]
  - WITHDRAWAL SYNDROME [None]
